FAERS Safety Report 6507868-3 (Version None)
Quarter: 2009Q4

REPORT INFORMATION
  Report Type: 
  Country: None (occurrence: None)
  Receive Date: 20091210
  Receipt Date: 20090602
  Transmission Date: 20100525
  Serious: Yes (Other)
  Sender: FDA-Public Use
  Company Number: CIP08001608

PATIENT
  Sex: Female

DRUGS (16)
  1. ACTONEL [Suspect]
     Indication: OSTEOPOROSIS
     Dosage: 35 MG, 1 /WEEK, ORAL
     Route: 048
     Dates: start: 20020901, end: 20041021
  2. ACTONEL [Suspect]
     Indication: OSTEOPOROSIS
     Dosage: 35 MG, 1 /WEEK, ORAL
     Route: 048
     Dates: start: 20041101, end: 20060308
  3. ACTONEL [Suspect]
     Indication: OSTEOPOROSIS
     Dosage: 35 MG, 1 /WEEK, ORAL
     Route: 048
     Dates: start: 20060908, end: 20071030
  4. ACTONEL [Suspect]
     Indication: OSTEOPOROSIS
     Dosage: 30 MG, 1 /WEEK, ORAL
     Route: 048
     Dates: start: 20060308, end: 20060908
  5. BENICAR [Concomitant]
  6. LEXAPRO [Concomitant]
  7. ATIVAN [Concomitant]
  8. ZETIA [Concomitant]
  9. TRENTAL [Concomitant]
  10. PRILOSEC [Concomitant]
  11. ULTRACET [Concomitant]
  12. ASPIRIN [Concomitant]
  13. CALCIUM (CALCIUM) [Concomitant]
  14. PROZAC [Concomitant]
  15. ZANTAC [Concomitant]
  16. CRESTOR [Concomitant]

REACTIONS (13)
  - DENTAL CARIES [None]
  - DYSPEPSIA [None]
  - JAW DISORDER [None]
  - OSTEOMYELITIS [None]
  - OSTEONECROSIS [None]
  - PRIMARY SEQUESTRUM [None]
  - PULPITIS DENTAL [None]
  - TOOTH EROSION [None]
  - TOOTH EXTRACTION [None]
  - TOOTH FRACTURE [None]
  - TOOTH LOSS [None]
  - TOOTH REPAIR [None]
  - TOOTHACHE [None]
